FAERS Safety Report 5135444-6 (Version None)
Quarter: 2006Q4

REPORT INFORMATION
  Report Type: 
  Country: None (occurrence: None)
  Receive Date: 20061026
  Receipt Date: 20061019
  Transmission Date: 20070319
  Serious: Yes (Death, Hospitalization)
  Sender: FDA-Public Use
  Company Number: 467317

PATIENT
  Age: 78 Year
  Sex: Female

DRUGS (6)
  1. CARVEDILOL [Suspect]
     Indication: CARDIAC FAILURE CHRONIC
     Dosage: 1MG TWICE PER DAY
     Route: 048
     Dates: start: 20041019, end: 20050315
  2. ASPIRIN [Concomitant]
     Dates: start: 19990124, end: 20041218
  3. FRANDOL [Concomitant]
     Dates: start: 20041015, end: 20041218
  4. SIGMART [Concomitant]
     Dates: start: 20041007, end: 20041218
  5. LASIX [Concomitant]
     Dates: start: 20041015, end: 20041218
  6. BLOPRESS [Concomitant]
     Dates: start: 20011128, end: 20041218

REACTIONS (5)
  - ANGINA PECTORIS [None]
  - CARDIAC FAILURE [None]
  - CONDITION AGGRAVATED [None]
  - DEATH [None]
  - DYSPNOEA [None]
